FAERS Safety Report 6312748-2 (Version None)
Quarter: 2009Q3

REPORT INFORMATION
  Report Type: 
  Country: None (occurrence: None)
  Receive Date: 20090817
  Receipt Date: 20090817
  Transmission Date: 20100115
  Serious: Yes (Hospitalization)
  Sender: FDA-Public Use
  Company Number: None

PATIENT
  Age: 62 Year
  Sex: Female
  Weight: 101.8779 kg

DRUGS (2)
  1. TARCEVA [Suspect]
     Indication: NEOPLASM MALIGNANT
     Dosage: 400 MG BID PO
     Route: 048
     Dates: start: 20090715, end: 20090725
  2. SORAFENIB [Suspect]
     Indication: NEOPLASM MALIGNANT
     Dosage: 150 MG DAILY PO
     Route: 048
     Dates: start: 20090715, end: 20090725

REACTIONS (3)
  - ABDOMINAL DISTENSION [None]
  - ABDOMINAL PAIN [None]
  - HAEMOGLOBIN DECREASED [None]
